FAERS Safety Report 6735166-1 (Version None)
Quarter: 2010Q2

REPORT INFORMATION
  Report Type: 
  Country: None (occurrence: None)
  Receive Date: 20100519
  Receipt Date: 20100519
  Transmission Date: 20101027
  Serious: Yes (Other)
  Sender: FDA-Public Use
  Company Number: None

PATIENT
  Age: 36 Year
  Sex: Male
  Weight: 58.514 kg

DRUGS (1)
  1. METOZOLV ODT [Suspect]
     Indication: GASTRIC HYPOMOTILITY
     Dosage: 10 MG
     Dates: start: 20100506, end: 20100507

REACTIONS (9)
  - AGGRESSION [None]
  - DIZZINESS [None]
  - FEELING ABNORMAL [None]
  - FEELING DRUNK [None]
  - HEADACHE [None]
  - METAMORPHOPSIA [None]
  - MUSCLE TWITCHING [None]
  - THINKING ABNORMAL [None]
  - TREMOR [None]
